FAERS Safety Report 9710548 (Version 1)
Quarter: 2013Q4

REPORT INFORMATION
  Report Type: Spontaneous
  Country: US (occurrence: US)
  Receive Date: 20131126
  Receipt Date: 20131126
  Transmission Date: 20140711
  Serious: Yes (Hospitalization)
  Sender: FDA-Public Use
  Company Number: US-BRISTOL-MYERS SQUIBB COMPANY-18880542

PATIENT
  Age: 43 Year
  Sex: Male

DRUGS (2)
  1. BYETTA [Suspect]
  2. GLYBURIDE [Concomitant]

REACTIONS (1)
  - Pancreatitis [Unknown]
